FAERS Safety Report 6657949-9 (Version None)
Quarter: 2010Q1

REPORT INFORMATION
  Report Type: 
  Country: None (occurrence: None)
  Receive Date: 20100330
  Receipt Date: 20100324
  Transmission Date: 20100710
  Serious: Yes (Hospitalization)
  Sender: FDA-Public Use
  Company Number: JP-ROCHE-693577

PATIENT
  Age: 68 Year
  Sex: Female

DRUGS (1)
  1. XELODA [Suspect]
     Indication: COLON CANCER
     Route: 048

REACTIONS (1)
  - GASTROENTERITIS EOSINOPHILIC [None]
